FAERS Safety Report 8219179-9 (Version None)
Quarter: 2012Q1

REPORT INFORMATION
  Report Type: 
  Country: None (occurrence: None)
  Receive Date: 20120319
  Receipt Date: 20120307
  Transmission Date: 20120608
  Serious: Yes (Hospitalization)
  Sender: FDA-Public Use
  Company Number: CA-CELGENEUS-028-C5013-12012312

PATIENT
  Sex: Male
  Weight: 87.7 kg

DRUGS (26)
  1. PAMIDRONATE DISODIUM [Concomitant]
     Dosage: 90 MILLIGRAM
     Route: 041
     Dates: start: 20120121, end: 20120121
  2. FISH OIL [Concomitant]
     Indication: ROUTINE HEALTH MAINTENANCE
     Dosage: 1000 MILLIGRAM
     Route: 048
     Dates: start: 20050101
  3. SODIUM CHLORIDE [Concomitant]
     Dosage: 100ML/HR
     Route: 041
     Dates: start: 20120121, end: 20120121
  4. TYLENOL ARTHRITIS [Concomitant]
     Indication: ARTHRITIS
     Dosage: 650 MILLIGRAM
     Route: 048
     Dates: start: 20050101
  5. LENALIDOMIDE [Suspect]
     Route: 048
     Dates: start: 20111128
  6. LENALIDOMIDE [Suspect]
     Route: 048
     Dates: start: 20120109, end: 20120120
  7. NEUPOGEN [Concomitant]
     Indication: NEUTROPENIA
     Dosage: 300 MICROGRAM
     Route: 058
     Dates: start: 20111213, end: 20111215
  8. ALLOPURINOL [Concomitant]
     Indication: PROPHYLAXIS
     Dosage: 300 MILLIGRAM
     Route: 048
     Dates: start: 20111125, end: 20120120
  9. ASPIRIN [Concomitant]
     Indication: THROMBOSIS PROPHYLAXIS
     Dosage: 81 MILLIGRAM
     Route: 048
     Dates: start: 20111129, end: 20111206
  10. ALLOPURINOL [Concomitant]
     Dosage: 200 MILLIGRAM
     Route: 048
     Dates: start: 20120121, end: 20120121
  11. MAGNESIUM [Concomitant]
     Indication: ROUTINE HEALTH MAINTENANCE
     Dosage: 250 MILLIGRAM
     Route: 048
     Dates: start: 20050101, end: 20110101
  12. CENTRUM SELECT 50 [Concomitant]
     Indication: ROUTINE HEALTH MAINTENANCE
     Dosage: 1-2 TABLET(S)
     Route: 048
     Dates: start: 20050101
  13. TYLENOL [Concomitant]
     Indication: FEBRILE NEUTROPENIA
     Dosage: 1 GRAM
     Route: 048
     Dates: start: 20111215, end: 20111215
  14. PAMIDRONATE DISODIUM [Concomitant]
     Dosage: 90 MILLIGRAM
     Route: 041
     Dates: start: 20111202, end: 20111202
  15. CALCITONIN SALMON [Concomitant]
     Dosage: 360 UNITS
     Route: 058
     Dates: start: 20120122, end: 20120122
  16. VITAMIN D [Concomitant]
     Indication: ROUTINE HEALTH MAINTENANCE
     Route: 048
     Dates: start: 20050101
  17. SODIUM CHLORIDE [Concomitant]
     Dosage: 75ML/HR
     Route: 041
     Dates: start: 20111215, end: 20111218
  18. MACROBID [Concomitant]
     Indication: URINARY TRACT INFECTION
     Dosage: 100 MILLIGRAM
     Route: 048
     Dates: start: 20111215, end: 20111229
  19. TYLENOL ARTHRITIS [Concomitant]
     Dosage: 500 MILLIGRAM
     Route: 048
     Dates: start: 20111129
  20. VITAMIN B COMPLEX CAP [Concomitant]
     Indication: ROUTINE HEALTH MAINTENANCE
     Dosage: 1 TABLET
     Route: 048
     Dates: start: 20050101
  21. ALLOPURINOL [Concomitant]
     Dosage: 300 MILLIGRAM
     Route: 048
     Dates: start: 20120121, end: 20120204
  22. PAMIDRONATE DISODIUM [Concomitant]
     Dosage: 90 MILLIGRAM
     Route: 041
     Dates: start: 20120121, end: 20120121
  23. GLUCOSAMINE CHONDROITIN [Concomitant]
     Indication: ARTHRITIS
     Route: 048
     Dates: start: 20050101
  24. ASPIRIN [Concomitant]
     Dosage: 81 MILLIGRAM
     Route: 048
     Dates: start: 20111207, end: 20120204
  25. SODIUM CHLORIDE [Concomitant]
     Dosage: 1000ML/HR
     Route: 041
     Dates: start: 20120121, end: 20120121
  26. PIPERACILLIN AND TAZOBACTAM [Concomitant]
     Indication: FEBRILE NEUTROPENIA
     Dosage: MILLIGRAM
     Route: 041
     Dates: start: 20111215, end: 20111218

REACTIONS (5)
  - HYPERCALCAEMIA [None]
  - LACRIMATION INCREASED [None]
  - FEBRILE NEUTROPENIA [None]
  - ESCHERICHIA URINARY TRACT INFECTION [None]
  - NIGHT SWEATS [None]
